FAERS Safety Report 9235972 (Version 2)
Quarter: 2013Q2

REPORT INFORMATION
  Report Type: Spontaneous
  Country: JP (occurrence: JP)
  Receive Date: 20130417
  Receipt Date: 20130524
  Transmission Date: 20140414
  Serious: Yes (Death, Hospitalization, Other)
  Sender: FDA-Public Use
  Company Number: PHHY2013JP036152

PATIENT
  Age: 75 Year
  Sex: Female
  Weight: 47 kg

DRUGS (7)
  1. GLIVEC [Suspect]
     Indication: GASTROINTESTINAL STROMAL TUMOUR
     Dosage: 400 MG, DAILY
     Route: 048
     Dates: start: 20040622
  2. GLIVEC [Suspect]
     Dosage: UNK
     Route: 048
     Dates: start: 20060808
  3. URSO [Concomitant]
     Indication: HEPATIC FUNCTION ABNORMAL
     Dosage: 150 MG, UNK
     Route: 048
     Dates: start: 20130201, end: 20130203
  4. SOLDEM 3A [Concomitant]
     Dosage: 2000 ML, UNK
     Route: 041
     Dates: start: 20130130, end: 20130204
  5. LASIX [Concomitant]
     Indication: OEDEMA
     Dosage: 20 MG, UNK
     Route: 042
     Dates: start: 20130130, end: 20130204
  6. TIENAM [Concomitant]
     Indication: CHOLANGITIS
     Dosage: 1000 MG, UNK
     Route: 041
     Dates: start: 20130204
  7. FUTHAN [Concomitant]
     Indication: PROPHYLAXIS
     Dosage: 20 MG, UNK
     Route: 041
     Dates: start: 20130204

REACTIONS (29)
  - Cholangitis [Fatal]
  - Liver function test abnormal [Fatal]
  - Blood bilirubin increased [Fatal]
  - Abdominal pain [Fatal]
  - Inflammation [Fatal]
  - Pyrexia [Fatal]
  - Biliary dilatation [Fatal]
  - Hyperkalaemia [Fatal]
  - Death [Fatal]
  - Haemolysis [Fatal]
  - Haemoglobin decreased [Fatal]
  - Neoplasm [Unknown]
  - Metastases to peritoneum [Fatal]
  - Haemolytic anaemia [Fatal]
  - Sepsis [Fatal]
  - Decreased appetite [Recovering/Resolving]
  - Second primary malignancy [Unknown]
  - Cardiac arrest [Unknown]
  - Blood pressure increased [Unknown]
  - Heart rate decreased [Unknown]
  - Agitation [Unknown]
  - Respiratory rate decreased [Unknown]
  - Gastrointestinal stromal tumour [Unknown]
  - Malignant neoplasm progression [Unknown]
  - Necrosis [Unknown]
  - Metastases to liver [Unknown]
  - Haemorrhage [Unknown]
  - Drug level decreased [Unknown]
  - Drug resistance [Unknown]
